FAERS Safety Report 17290108 (Version 1)
Quarter: 2020Q1

REPORT INFORMATION
  Report Type: Spontaneous
  Country: US (occurrence: US)
  Receive Date: 20200120
  Receipt Date: 20200120
  Transmission Date: 20200409
  Serious: No
  Sender: FDA-Public Use
  Company Number: NVSC2020US011766

PATIENT
  Sex: Female

DRUGS (2)
  1. PENICILLIN G SODIUM. [Suspect]
     Active Substance: PENICILLIN G SODIUM
     Indication: TONSILLITIS
     Dosage: UNK
     Route: 065
  2. PENICILLIN V POTASSIUM TABLETS [Suspect]
     Active Substance: PENICILLIN V POTASSIUM
     Indication: TONSILLITIS
     Dosage: UNK
     Route: 065

REACTIONS (3)
  - Oral pain [Unknown]
  - Candida infection [Unknown]
  - Oral discomfort [Unknown]
